FAERS Safety Report 5446785-7 (Version None)
Quarter: 2007Q3

REPORT INFORMATION
  Report Type: 
  Country: None (occurrence: None)
  Receive Date: 20070802
  Receipt Date: 20070411
  Transmission Date: 20080115
  Serious: Yes (Other)
  Sender: FDA-Public Use
  Company Number: MIN-00167

PATIENT
  Age: 15 Year
  Sex: Male
  Weight: 68.2 kg

DRUGS (2)
  1. MINOCYCLINE HCL [Suspect]
     Indication: ACNE
     Dosage: 100 MG, QD, PO
     Route: 048
  2. TAZARAC (TAZAROTENE) [Concomitant]

REACTIONS (1)
  - LUPUS-LIKE SYNDROME [None]
